FAERS Safety Report 15377663 (Version 2)
Quarter: 2018Q3

REPORT INFORMATION
  Report Type: Spontaneous
  Country: CN (occurrence: CN)
  Receive Date: 20180913
  Receipt Date: 20180913
  Transmission Date: 20181010
  Serious: Yes (Other)
  Sender: FDA-Public Use
  Company Number: PHHY2018CN092431

PATIENT
  Age: 58 Year
  Sex: Male

DRUGS (5)
  1. CICLOSPORIN [Suspect]
     Active Substance: CYCLOSPORINE
     Indication: MYELODYSPLASTIC SYNDROME
     Dosage: 125 MG, Q12H
     Route: 048
  2. DANAZOL. [Suspect]
     Active Substance: DANAZOL
     Indication: MYELODYSPLASTIC SYNDROME
     Dosage: 200 MG, TID
     Route: 048
  3. LEVAMISOLE [Suspect]
     Active Substance: LEVAMISOLE
     Indication: MYELODYSPLASTIC SYNDROME
     Dosage: 50 MG, 3 TIMES EVERY OTHER DAY
     Route: 048
  4. THALIDOMIDE [Suspect]
     Active Substance: THALIDOMIDE
     Indication: MYELODYSPLASTIC SYNDROME
     Dosage: 100 MG, QHS
     Route: 048
  5. TESTOSTERONE. [Suspect]
     Active Substance: TESTOSTERONE
     Indication: MYELODYSPLASTIC SYNDROME
     Dosage: UNK
     Route: 048

REACTIONS (3)
  - Second primary malignancy [Unknown]
  - Product use in unapproved indication [Unknown]
  - Plasmacytoma [Unknown]
